FAERS Safety Report 8263952-8 (Version None)
Quarter: 2012Q2

REPORT INFORMATION
  Report Type: 
  Country: None (occurrence: None)
  Receive Date: 20120406
  Receipt Date: 20120330
  Transmission Date: 20120825
  Serious: Yes (Hospitalization)
  Sender: FDA-Public Use
  Company Number: BR-BIOGENIDEC-2012BI011736

PATIENT
  Age: 67 Year
  Sex: Female

DRUGS (1)
  1. TYSABRI [Suspect]
     Indication: MULTIPLE SCLEROSIS
     Route: 042
     Dates: start: 20111219, end: 20111219

REACTIONS (5)
  - DIARRHOEA [None]
  - VOMITING [None]
  - FAECAL INCONTINENCE [None]
  - WEIGHT DECREASED [None]
  - DISBACTERIOSIS [None]
